FAERS Safety Report 4588533-9 (Version None)
Quarter: 2005Q1

REPORT INFORMATION
  Report Type: 
  Country: None (occurrence: None)
  Receive Date: 20050222
  Receipt Date: 20050215
  Transmission Date: 20050727
  Serious: Yes (Hospitalization)
  Sender: FDA-Public Use
  Company Number: 200511217US

PATIENT
  Age: 49 Year
  Sex: Male

DRUGS (2)
  1. LOVENOX [Suspect]
     Indication: THROMBOSIS
     Dosage: DOSE: UNK
     Dates: start: 20030101, end: 20030101
  2. MULTI-VITAMINS [Concomitant]
     Dosage: DOSE: UNK

REACTIONS (8)
  - DRY SKIN [None]
  - ERYTHEMA [None]
  - FACE OEDEMA [None]
  - INFECTION [None]
  - LOCALISED INFECTION [None]
  - OEDEMA PERIPHERAL [None]
  - PURULENCE [None]
  - RASH [None]
